FAERS Safety Report 17945768 (Version 3)
Quarter: 2020Q4

REPORT INFORMATION
  Report Type: Spontaneous
  Country: None (occurrence: None)
  Receive Date: 20200625
  Receipt Date: 20201009
  Transmission Date: 20210113
  Serious: Yes (Hospitalization, Other)
  Sender: FDA-Public Use
  Company Number: VN-B.I. PHARMACEUTICALS,INC./RIDGEFIELD-2020-BI-032079

PATIENT
  Age: 65 Year
  Sex: Male

DRUGS (4)
  1. PRADAXA [Suspect]
     Active Substance: DABIGATRAN ETEXILATE MESYLATE
     Indication: ATRIAL FIBRILLATION
     Route: 048
  2. PRADAXA [Suspect]
     Active Substance: DABIGATRAN ETEXILATE MESYLATE
     Indication: CEREBROVASCULAR ACCIDENT PROPHYLAXIS
     Route: 048
     Dates: start: 20200619
  3. METOPROLOL. [Concomitant]
     Active Substance: METOPROLOL
     Indication: PRODUCT USED FOR UNKNOWN INDICATION
     Route: 048
  4. LISINOPRIL. [Concomitant]
     Active Substance: LISINOPRIL
     Indication: PRODUCT USED FOR UNKNOWN INDICATION
     Route: 048

REACTIONS (9)
  - Acute kidney injury [Recovered/Resolved]
  - Pericardial effusion [Recovered/Resolved]
  - Gastrointestinal infection [Recovered/Resolved]
  - Nephrolithiasis [Recovered/Resolved]
  - Aortic dissection [Recovered/Resolved]
  - Benign prostatic hyperplasia [Recovered/Resolved]
  - Septic shock [Recovered/Resolved]
  - Urinary tract infection [Recovered/Resolved]
  - Hydronephrosis [Recovered/Resolved]

NARRATIVE: CASE EVENT DATE: 202006
